FAERS Safety Report 10685894 (Version 2)
Quarter: 2015Q1

REPORT INFORMATION
  Report Type: Spontaneous
  Country: CN (occurrence: CN)
  Receive Date: 20141231
  Receipt Date: 20150126
  Transmission Date: 20150720
  Serious: Yes (Other)
  Sender: FDA-Public Use
  Company Number: CN-GILEAD-2014-0129424

PATIENT
  Sex: Male

DRUGS (1)
  1. HEPSERA [Suspect]
     Active Substance: ADEFOVIR DIPIVOXIL
     Indication: HEPATITIS B
     Dosage: UNK
     Route: 048
     Dates: start: 2013, end: 2014

REACTIONS (3)
  - Calcium deficiency [Not Recovered/Not Resolved]
  - Acidosis [Not Recovered/Not Resolved]
  - Phosphorus metabolism disorder [Not Recovered/Not Resolved]

NARRATIVE: CASE EVENT DATE: 2014
